FAERS Safety Report 9879863 (Version 2)
Quarter: 2014Q1

REPORT INFORMATION
  Report Type: Spontaneous
  Country: PT (occurrence: PT)
  Receive Date: 20140206
  Receipt Date: 20140214
  Transmission Date: 20141002
  Serious: Yes (Hospitalization, Other)
  Sender: FDA-Public Use
  Company Number: PT-JNJFOC-20140202558

PATIENT
  Age: 80 Year
  Sex: Female

DRUGS (14)
  1. ZYRTEC [Suspect]
     Route: 048
  2. ZYRTEC [Suspect]
     Indication: ECZEMA
     Route: 048
     Dates: start: 20130525, end: 20130528
  3. AERIUS [Suspect]
     Indication: ECZEMA
     Route: 048
     Dates: start: 20130525, end: 20130528
  4. HYDROCORTISONE [Concomitant]
     Indication: TOXIC SKIN ERUPTION
     Route: 048
  5. METFORMIN HYDROCHLORIDE [Concomitant]
     Indication: TYPE 2 DIABETES MELLITUS
     Route: 048
  6. PERINDOPRIL TERT-BUTYLAMINE [Concomitant]
     Indication: HYPERTENSION
     Route: 048
  7. TEMAZEPAM [Concomitant]
     Indication: HYPERTENSION
     Route: 048
  8. SINVASTATINA [Concomitant]
     Indication: DYSLIPIDAEMIA
     Route: 048
  9. CLEMASTINE [Concomitant]
     Indication: TOXIC SKIN ERUPTION
     Route: 048
  10. BISOPROLOL FUMARATE [Concomitant]
     Indication: HYPERTENSION
     Route: 048
  11. RANITIDINE [Concomitant]
     Indication: TOXIC SKIN ERUPTION
     Route: 048
  12. INDAPAMIDE [Concomitant]
     Indication: HYPERTENSION
     Route: 048
  13. HYDROXYZINE HYDROCHLORIDE [Concomitant]
     Indication: HYPERTENSION
     Route: 048
  14. VILDAGLIPTIN [Concomitant]
     Indication: TYPE 2 DIABETES MELLITUS
     Route: 048

REACTIONS (4)
  - Eczema [Recovered/Resolved]
  - Rash maculo-papular [Recovered/Resolved]
  - Face oedema [Recovered/Resolved]
  - Pruritus [Recovered/Resolved]
